FAERS Safety Report 5883311-2 (Version None)
Quarter: 2008Q3

REPORT INFORMATION
  Report Type: 
  Country: None (occurrence: None)
  Receive Date: 20080910
  Receipt Date: 20080910
  Transmission Date: 20090109
  Serious: Yes (Other)
  Sender: FDA-Public Use
  Company Number: None

PATIENT
  Age: 47 Year
  Sex: Female
  Weight: 73.4827 kg

DRUGS (1)
  1. MIRENA [Suspect]
     Indication: CONTRACEPTION
     Dates: start: 20080105, end: 20080805

REACTIONS (5)
  - HAEMORRHAGE [None]
  - LOSS OF LIBIDO [None]
  - MIGRAINE [None]
  - PREMENSTRUAL SYNDROME [None]
  - WEIGHT INCREASED [None]
